FAERS Safety Report 10646097 (Version 1)
Quarter: 2014Q4

REPORT INFORMATION
  Report Type: Report from Study
  Country: ES (occurrence: ES)
  Receive Date: 20141211
  Receipt Date: 20141211
  Transmission Date: 20150529
  Serious: Yes (Other)
  Sender: FDA-Public Use
  Company Number: ES-MYLANLABS-2014M1013604

PATIENT

DRUGS (5)
  1. PROGLICEM [Suspect]
     Active Substance: DIAZOXIDE
     Indication: INSULINOMA
     Dosage: 200 MG, QD
     Route: 065
  2. PROGLICEM [Suspect]
     Active Substance: DIAZOXIDE
     Dosage: 500 MG, TID
     Route: 065
  3. EVEROLIMUS [Suspect]
     Active Substance: EVEROLIMUS
     Indication: INSULINOMA
     Dosage: 5 MG, QD
     Route: 065
  4. DEXAMETHASONE. [Suspect]
     Active Substance: DEXAMETHASONE
     Indication: INSULINOMA
     Route: 065
  5. OCTREOTIDE [Concomitant]
     Active Substance: OCTREOTIDE
     Indication: INSULINOMA
     Route: 065

REACTIONS (5)
  - Pneumonia [Unknown]
  - Cushing^s syndrome [Unknown]
  - Respiratory failure [Unknown]
  - Oedema peripheral [Unknown]
  - Hypoglycaemia [Unknown]
